FAERS Safety Report 8559557-1 (Version None)
Quarter: 2012Q2

REPORT INFORMATION
  Report Type: 
  Country: None (occurrence: None)
  Receive Date: 20120418
  Receipt Date: 20120214
  Transmission Date: 20120825
  Serious: Yes (Other)
  Sender: FDA-Public Use
  Company Number: 2012-00273

PATIENT
  Age: 91 Year
  Sex: Male
  Weight: 77.1115 kg

DRUGS (9)
  1. LISINOPRIL [Concomitant]
  2. WARFARIN SODIUM [Concomitant]
  3. VITAMIN TAB [Concomitant]
  4. ALLOPURINOL [Concomitant]
  5. ZETIA [Concomitant]
  6. PREDNISOLONE (PRED FORTE) [Concomitant]
  7. FUROSEMIDE [Concomitant]
  8. LORAZEPAM [Concomitant]
  9. LEVOFLOXACIN [Suspect]
     Indication: URINARY TRACT INFECTION
     Dosage: 750 MG (750 MG, 1 IN 1 D), PER ORAL
     Route: 048
     Dates: start: 20120209, end: 20120211

REACTIONS (1)
  - HALLUCINATION, VISUAL [None]
